FAERS Safety Report 20721445 (Version 1)
Quarter: 2022Q2

REPORT INFORMATION
  Report Type: Spontaneous
  Country: US (occurrence: None)
  Receive Date: 20220417
  Receipt Date: 20220417
  Transmission Date: 20220721
  Serious: Yes (Hospitalization)
  Sender: FDA-Public Use
  Company Number: None

PATIENT
  Age: 69 Year
  Sex: Female

DRUGS (3)
  1. MYCOPHENOLATE MOFETIL [Suspect]
     Active Substance: MYCOPHENOLATE MOFETIL
     Dosage: FREQUENCY : TWICE A DAY;?
     Route: 048
     Dates: start: 20210325
  2. Cyclosporine (modified) [Concomitant]
  3. Cyclosporine (modified) [Concomitant]

REACTIONS (2)
  - Loss of consciousness [None]
  - Disorientation [None]

NARRATIVE: CASE EVENT DATE: 20220412
